FAERS Safety Report 13266981 (Version 1)
Quarter: 2017Q1

REPORT INFORMATION
  Report Type: Spontaneous
  Country: US (occurrence: US)
  Receive Date: 20170223
  Receipt Date: 20170223
  Transmission Date: 20170428
  Serious: No
  Sender: FDA-Public Use
  Company Number: None

PATIENT
  Age: 62 Year
  Sex: Female

DRUGS (3)
  1. ACTEMRA [Suspect]
     Active Substance: TOCILIZUMAB
     Indication: RHEUMATOID ARTHRITIS
     Dosage: ONE 162MG SYRINGE EVERY 2 WEEKS SUBCUTANEOUSLY
     Route: 058
     Dates: start: 20170202
  2. GABAPENTIN. [Concomitant]
     Active Substance: GABAPENTIN
  3. OXYMORPHONE [Concomitant]
     Active Substance: OXYMORPHONE

REACTIONS (2)
  - Fatigue [None]
  - Condition aggravated [None]

NARRATIVE: CASE EVENT DATE: 20170222
